FAERS Safety Report 5089153-2 (Version None)
Quarter: 2006Q3

REPORT INFORMATION
  Report Type: 
  Country: None (occurrence: None)
  Receive Date: 20060825
  Receipt Date: 20060710
  Transmission Date: 20061208
  Serious: Yes (Hospitalization)
  Sender: FDA-Public Use
  Company Number: PHRM2006FR02048

PATIENT
  Age: 76 Year
  Sex: Female

DRUGS (7)
  1. TAREG [Suspect]
     Route: 048
     Dates: end: 20060429
  2. DIAMICRON [Suspect]
     Route: 048
     Dates: end: 20060429
  3. LANTUS [Concomitant]
     Route: 058
     Dates: start: 20060405
  4. LAMISIL [Suspect]
     Route: 065
     Dates: start: 20060310, end: 20060311
  5. KERLONE [Suspect]
     Route: 048
     Dates: end: 20060429
  6. METFORMIN HCL [Suspect]
     Dosage: 850 MG, QD
     Route: 048
     Dates: end: 20060429
  7. ASPIRIN [Concomitant]
     Dosage: 75 MG/DAY
     Route: 048

REACTIONS (8)
  - AGRANULOCYTOSIS [None]
  - DERMATITIS EXFOLIATIVE [None]
  - EOSINOPHILIA [None]
  - ERYTHEMA MULTIFORME [None]
  - NEUTROPENIA [None]
  - PRURITUS [None]
  - RASH MACULO-PAPULAR [None]
  - TOXIC SKIN ERUPTION [None]
